FAERS Safety Report 5822006-8 (Version None)
Quarter: 2008Q3

REPORT INFORMATION
  Report Type: 
  Country: None (occurrence: None)
  Receive Date: 20080724
  Receipt Date: 20080709
  Transmission Date: 20090109
  Serious: Yes (Hospitalization)
  Sender: FDA-Public Use
  Company Number: JP-GENENTECH-257294

PATIENT
  Sex: Male

DRUGS (7)
  1. BEVACIZUMAB [Suspect]
     Indication: COLON CANCER METASTATIC
     Dosage: 5 MG/KG, QD
     Route: 041
     Dates: start: 20070815
  2. IRINOTECAN HCL [Suspect]
     Indication: COLON CANCER METASTATIC
     Dosage: 120 MG/M2, QD
     Route: 041
     Dates: start: 20070815, end: 20070912
  3. FLUOROURACIL [Suspect]
     Indication: COLON CANCER METASTATIC
     Dosage: UNK, UNKNOWN
     Dates: end: 20080118
  4. ISOVORIN [Suspect]
     Indication: COLON CANCER METASTATIC
     Dosage: UNK, UNKNOWN
     Route: 041
     Dates: end: 20080116
  5. OXALIPLATIN [Suspect]
     Indication: COLON CANCER METASTATIC
     Dosage: UNK, UNKNOWN
     Route: 041
     Dates: end: 20080116
  6. KYTRIL [Concomitant]
     Indication: DRUG USE FOR UNKNOWN INDICATION
     Dates: start: 20070815, end: 20070815
  7. DECADRON [Concomitant]
     Indication: DRUG USE FOR UNKNOWN INDICATION
     Dates: start: 20070815, end: 20070815

REACTIONS (1)
  - HYPERSENSITIVITY [None]
